FAERS Safety Report 20030797 (Version 1)
Quarter: 2021Q4

REPORT INFORMATION
  Report Type: Report from Study
  Country: DE (occurrence: DE)
  Receive Date: 20211103
  Receipt Date: 20211103
  Transmission Date: 20220304
  Serious: Yes (Hospitalization)
  Sender: FDA-Public Use
  Company Number: DE-BAYER-2021A242858

PATIENT
  Age: 44 Year
  Sex: Male

DRUGS (1)
  1. BETAFERON [Suspect]
     Active Substance: INTERFERON BETA-1B
     Indication: Multiple sclerosis
     Dosage: 250 ?G, QOD
     Route: 058
     Dates: start: 20100903

REACTIONS (2)
  - Skin induration [Unknown]
  - Bronchitis chronic [Recovering/Resolving]

NARRATIVE: CASE EVENT DATE: 20210816
